FAERS Safety Report 8697571 (Version 2)
Quarter: 2012Q4

REPORT INFORMATION
  Report Type: 
  Country: PL (occurrence: PL)
  Receive Date: 20120801
  Receipt Date: 20120913
  Transmission Date: 20130627
  Serious: Yes (Other)
  Sender: FDA-Public Use
  Company Number: PHHY2012PL064627

PATIENT
  Age: 33 Year
  Sex: Female

DRUGS (4)
  1. METHOTREXATE [Suspect]
     Indication: ABORTION INDUCED
     Dosage: 2.5 mg, BID
     Route: 048
  2. METHOTREXATE [Suspect]
     Dosage: 50 mg, DAILY
  3. METHOTREXATE [Suspect]
     Dosage: 70 mg, daily
  4. FOLINIC ACID [Suspect]
     Indication: ABORTION INDUCED
     Dosage: 10 mg

REACTIONS (2)
  - Premature separation of placenta [Unknown]
  - Exposure during pregnancy [Unknown]
